FAERS Safety Report 5639653-9 (Version None)
Quarter: 2008Q1

REPORT INFORMATION
  Report Type: 
  Country: None (occurrence: None)
  Receive Date: 20080222
  Receipt Date: 20080129
  Transmission Date: 20080703
  Serious: Yes (Other)
  Sender: FDA-Public Use
  Company Number: CC08-99

PATIENT
  Age: 21 Month
  Sex: Female

DRUGS (1)
  1. PRIMATENE MIST [Suspect]
     Indication: ASTHMA
     Dosage: 2 ACTUATIONS AS NEEDED

REACTIONS (3)
  - ACCIDENTAL DRUG INTAKE BY CHILD [None]
  - ILL-DEFINED DISORDER [None]
  - LIP DISCOLOURATION [None]
